FAERS Safety Report 13254825 (Version 1)
Quarter: 2017Q1

REPORT INFORMATION
  Report Type: Spontaneous
  Country: US (occurrence: US)
  Receive Date: 20170221
  Receipt Date: 20170221
  Transmission Date: 20170428
  Serious: No
  Sender: FDA-Public Use
  Company Number: US-PFIZER INC-2017068683

PATIENT

DRUGS (2)
  1. LYRICA [Suspect]
     Active Substance: PREGABALIN
     Indication: NEUROPATHY PERIPHERAL
     Dosage: 50 MG, UNK
  2. LYRICA [Suspect]
     Active Substance: PREGABALIN
     Indication: PAIN
     Dosage: 75 MG, UNK

REACTIONS (8)
  - Impaired driving ability [Unknown]
  - Drug ineffective [Unknown]
  - Nausea [Unknown]
  - Anxiety [Unknown]
  - Cognitive disorder [Unknown]
  - Insomnia [Unknown]
  - Headache [Unknown]
  - Diarrhoea [Unknown]
